FAERS Safety Report 19050779 (Version 2)
Quarter: 2021Q2

REPORT INFORMATION
  Report Type: Other
  Country: FR (occurrence: FR)
  Receive Date: 20210324
  Receipt Date: 20210412
  Transmission Date: 20210717
  Serious: Yes (Death, Congenital Anomaly)
  Sender: FDA-Public Use
  Company Number: FR-CADILA HEALTHCARE LIMITED-FR-ZYDUS-063267

PATIENT

DRUGS (4)
  1. ELETRIPTAN. [Suspect]
     Active Substance: ELETRIPTAN
     Dosage: 40 MILLIGRAM, (INTERVAL: 1 WEEK)
     Dates: start: 20201005
  2. KETOPROFENE [KETOPROFEN] [Suspect]
     Active Substance: KETOPROFEN
     Indication: MIGRAINE
     Dosage: 100 MILLIGRAM, (INTERVAL? 1 WEEK)
     Route: 064
     Dates: start: 20200914, end: 20201215
  3. ELETRIPTAN. [Suspect]
     Active Substance: ELETRIPTAN
     Indication: MIGRAINE
     Dosage: 40 MILLIGRAM, (INTERVAL?1 WEEK)
     Route: 064
     Dates: start: 20201005, end: 20201215
  4. ALMOTRIPTAN. [Suspect]
     Active Substance: ALMOTRIPTAN
     Indication: MIGRAINE
     Dosage: 12.5 MILLIGRAM, (INTERVAL? 1 WEEK)
     Route: 064
     Dates: start: 20200914, end: 20201005

REACTIONS (2)
  - Talipes [Fatal]
  - Spina bifida [Fatal]

NARRATIVE: CASE EVENT DATE: 20201215
